FAERS Safety Report 5007589-2 (Version None)
Quarter: 2006Q2

REPORT INFORMATION
  Report Type: 
  Country: None (occurrence: None)
  Receive Date: 20060522
  Receipt Date: 20060320
  Transmission Date: 20061013
  Serious: Yes (Other)
  Sender: FDA-Public Use
  Company Number: PHBS2006BE04164

PATIENT
  Sex: Female

DRUGS (2)
  1. VOLTAREN [Suspect]
     Indication: ANAESTHESIA
  2. XYLOCAINE [Concomitant]

REACTIONS (4)
  - BLISTER [None]
  - DRUG ADMINISTRATION ERROR [None]
  - OEDEMA PERIPHERAL [None]
  - SKIN ULCER [None]
